FAERS Safety Report 9887630 (Version 3)
Quarter: 2014Q1

REPORT INFORMATION
  Report Type: Spontaneous
  Country: US (occurrence: US)
  Receive Date: 20140211
  Receipt Date: 20140212
  Transmission Date: 20141002
  Serious: Yes (Hospitalization)
  Sender: FDA-Public Use
  Company Number: US-JNJFOC-20130208094

PATIENT
  Age: 66 Year
  Sex: Female
  Weight: 79 kg

DRUGS (3)
  1. DURAGESIC [Suspect]
     Indication: PRODUCT USED FOR UNKNOWN INDICATION
     Route: 062
  2. TRABECTEDIN [Concomitant]
     Indication: SARCOMA
     Route: 042
     Dates: start: 20130123
  3. TRABECTEDIN [Concomitant]
     Indication: SARCOMA
     Route: 042
     Dates: start: 20121023, end: 20121024

REACTIONS (3)
  - Cerebral disorder [Unknown]
  - Confusional state [Not Recovered/Not Resolved]
  - Gliosis [Unknown]
